FAERS Safety Report 16898064 (Version 11)
Quarter: 2022Q3

REPORT INFORMATION
  Report Type: Spontaneous
  Country: GB (occurrence: GB)
  Receive Date: 20191009
  Receipt Date: 20220714
  Transmission Date: 20221026
  Serious: Yes (Other)
  Sender: FDA-Public Use
  Company Number: None

PATIENT
  Age: 32 Year
  Sex: Female

DRUGS (21)
  1. ARIPIPRAZOLE [Suspect]
     Active Substance: ARIPIPRAZOLE
     Indication: Product used for unknown indication
     Dosage: UNK
     Dates: start: 2019
  2. QUETIAPINE FUMARATE [Suspect]
     Active Substance: QUETIAPINE FUMARATE
     Indication: Product used for unknown indication
     Route: 048
  3. OLANZAPINE [Suspect]
     Active Substance: OLANZAPINE
     Indication: Hallucination, auditory
     Dosage: UNK
     Route: 048
  4. RISPERIDONE [Suspect]
     Active Substance: RISPERIDONE
     Indication: Hallucination, auditory
  5. CLOZARIL [Suspect]
     Active Substance: CLOZAPINE
     Indication: Schizoaffective disorder
     Dosage: UNK
     Route: 048
     Dates: start: 2019
  6. HALOPERIDOL [Suspect]
     Active Substance: HALOPERIDOL
     Indication: Hallucination, auditory
     Dosage: UNK
     Dates: start: 2019
  7. AMISULPRIDE [Suspect]
     Active Substance: AMISULPRIDE
     Indication: Hallucination, auditory
     Dates: start: 20050215
  8. HALDOL [Suspect]
     Active Substance: HALOPERIDOL
     Indication: Hallucination, auditory
     Dates: start: 2019
  9. RISPERDAL [Suspect]
     Active Substance: RISPERIDONE
     Indication: Schizophrenia
  10. ZUCLOPENTHIXOL [Suspect]
     Active Substance: ZUCLOPENTHIXOL
     Indication: Hallucination, auditory
     Dates: start: 2006, end: 20171205
  11. CLOZARIL [Suspect]
     Active Substance: CLOZAPINE
     Indication: Product used for unknown indication
     Dosage: UNK
     Route: 048
     Dates: start: 2006, end: 20171105
  12. CLOZARIL [Suspect]
     Active Substance: CLOZAPINE
     Indication: Schizoaffective disorder
     Dosage: UNK
     Route: 048
     Dates: start: 20050215
  13. CLOZARIL [Suspect]
     Active Substance: CLOZAPINE
     Indication: Schizoaffective disorder
     Dosage: UNK
     Route: 048
     Dates: start: 20050215, end: 20171205
  14. ZUCLOPENTHIXOL [Suspect]
     Active Substance: ZUCLOPENTHIXOL
     Indication: Product used for unknown indication
  15. QUETIAPINE FUMARATE [Suspect]
     Active Substance: QUETIAPINE FUMARATE
     Indication: Product used for unknown indication
     Route: 048
  16. CLOZARIL [Suspect]
     Active Substance: CLOZAPINE
     Indication: Schizophrenia
     Route: 048
     Dates: start: 20180205, end: 20191205
  17. CLOZARIL [Suspect]
     Active Substance: CLOZAPINE
     Indication: Schizophrenia
     Route: 048
     Dates: start: 2006, end: 20171205
  18. CLOZARIL [Suspect]
     Active Substance: CLOZAPINE
     Indication: Schizophrenia
     Route: 048
     Dates: start: 20150215, end: 20171205
  19. HALDOL [Suspect]
     Active Substance: HALOPERIDOL
     Indication: Schizophrenia
  20. CLOZARIL [Suspect]
     Active Substance: CLOZAPINE
     Indication: Schizoaffective disorder
     Dosage: UNK
     Route: 048
     Dates: start: 20180205, end: 2019
  21. CLOZARIL [Suspect]
     Active Substance: CLOZAPINE
     Indication: Schizoaffective disorder
     Dosage: UNK
     Route: 048
     Dates: start: 201909

REACTIONS (13)
  - Drug ineffective [Unknown]
  - Neutropenia [Recovered/Resolved]
  - Schizophrenia [Not Recovered/Not Resolved]
  - Suicidal ideation [Unknown]
  - Refusal of examination [Unknown]
  - Leukopenia [Recovered/Resolved]
  - Malaise [Unknown]
  - Eosinophil count decreased [Recovered/Resolved]
  - Intentional product misuse [Unknown]
  - Medication error [Unknown]
  - Eating disorder [Unknown]
  - Drug abuse [Unknown]
  - Mental impairment [Not Recovered/Not Resolved]

NARRATIVE: CASE EVENT DATE: 20171101
